FAERS Safety Report 18965461 (Version 1)
Quarter: 2021Q1

REPORT INFORMATION
  Report Type: Spontaneous
  Country: US (occurrence: US)
  Receive Date: 20210304
  Receipt Date: 20210304
  Transmission Date: 20210420
  Serious: Yes (Other)
  Sender: FDA-Public Use
  Company Number: US-SA-2021SA071113

PATIENT
  Age: 60 Year
  Sex: Female

DRUGS (1)
  1. ZANTAC [Suspect]
     Active Substance: RANITIDINE HYDROCHLORIDE
     Indication: DYSPEPSIA
     Dosage: 75 MG
     Dates: start: 199601, end: 201901

REACTIONS (6)
  - Lung neoplasm malignant [Unknown]
  - Colorectal cancer stage I [Unknown]
  - Gastrointestinal carcinoma [Recovering/Resolving]
  - Small intestine carcinoma stage I [Unknown]
  - Hepatic cancer stage III [Unknown]
  - Pancreatic carcinoma stage III [Unknown]

NARRATIVE: CASE EVENT DATE: 20191001
